FAERS Safety Report 9648250 (Version 1)
Quarter: 2013Q4

REPORT INFORMATION
  Report Type: Spontaneous
  Country: US (occurrence: None)
  Receive Date: 20131024
  Receipt Date: 20131024
  Transmission Date: 20140711
  Serious: No
  Sender: FDA-Public Use
  Company Number: None

PATIENT
  Age: 25 Year
  Sex: Female
  Weight: 63.5 kg

DRUGS (2)
  1. VYVANSE (LISDEXAMFETAMINE DIMESYLATE), SHIRE LLC [Suspect]
     Indication: ATTENTION DEFICIT/HYPERACTIVITY DISORDER
     Dosage: 30 MG 1 PILL DAILY (30 DAY SUPPLY) ONCE DAILY (AS NEEDED) BY MOUTH
     Route: 048
     Dates: start: 20131011, end: 20131016
  2. DAILY MULTIVITAMIN (WOMENS ONE-A-DAY) [Concomitant]

REACTIONS (9)
  - Dry eye [None]
  - Anxiety [None]
  - Abdominal pain upper [None]
  - Nausea [None]
  - Vision blurred [None]
  - Dizziness [None]
  - Vomiting [None]
  - Restlessness [None]
  - Cardiovascular disorder [None]
